FAERS Safety Report 11174990 (Version 1)
Quarter: 2015Q2

REPORT INFORMATION
  Report Type: Spontaneous
  Country: US (occurrence: None)
  Receive Date: 20150608
  Receipt Date: 20150608
  Transmission Date: 20150821
  Serious: Yes (Other)
  Sender: FDA-Public Use
  Company Number: None

PATIENT
  Sex: Female
  Weight: 77.11 kg

DRUGS (15)
  1. FURO SIMIDE [Concomitant]
  2. CALCIUM [Concomitant]
     Active Substance: CALCIUM
  3. ANASTROZOLE. [Suspect]
     Active Substance: ANASTROZOLE
     Indication: CANCER SURGERY
     Dosage: BY MOUTH
     Dates: start: 201011, end: 201504
  4. DILTIAZEM [Concomitant]
     Active Substance: DILTIAZEM
  5. SPIRIVA [Concomitant]
     Active Substance: TIOTROPIUM BROMIDE MONOHYDRATE
  6. VIT. D [Concomitant]
  7. PROTROPEUN [Concomitant]
  8. CPAP MASK [Concomitant]
  9. PROAIR HFA [Concomitant]
     Active Substance: ALBUTEROL SULFATE
  10. SYNTHROID [Concomitant]
     Active Substance: LEVOTHYROXINE SODIUM
  11. PRESERVISION [Concomitant]
     Active Substance: MINERALS\VITAMINS
  12. HUMALOG [Concomitant]
     Active Substance: INSULIN LISPRO
  13. ZETIA [Concomitant]
     Active Substance: EZETIMIBE
  14. TARMAZAPAM [Concomitant]
  15. COQ10 [Concomitant]
     Active Substance: UBIDECARENONE

REACTIONS (1)
  - Alopecia [None]
